FAERS Safety Report 5622641-6 (Version None)
Quarter: 2008Q1

REPORT INFORMATION
  Report Type: 
  Country: None (occurrence: None)
  Receive Date: 20080211
  Receipt Date: 20080211
  Transmission Date: 20080703
  Serious: Yes (Other)
  Sender: FDA-Public Use
  Company Number: None

PATIENT
  Age: 51 Year
  Sex: Female
  Weight: 90.7194 kg

DRUGS (1)
  1. BUDEPRION XL  300 MG  TEVA [Suspect]
     Indication: DEPRESSION
     Dosage: 300 MG  1 TIME DAILY  PO
     Route: 048
     Dates: start: 20080124, end: 20080207

REACTIONS (5)
  - CRYING [None]
  - DISTURBANCE IN ATTENTION [None]
  - HEADACHE [None]
  - MUSCULOSKELETAL STIFFNESS [None]
  - PHARMACEUTICAL PRODUCT COMPLAINT [None]
